FAERS Safety Report 5112542-4 (Version None)
Quarter: 2006Q3

REPORT INFORMATION
  Report Type: 
  Country: None (occurrence: None)
  Receive Date: 20060922
  Receipt Date: 20060912
  Transmission Date: 20061208
  Serious: Yes (Death, Other)
  Sender: FDA-Public Use
  Company Number: JP-BRISTOL-MYERS SQUIBB COMPANY-13515127

PATIENT
  Age: 68 Year
  Sex: Male

DRUGS (5)
  1. CYCLOPHOSPHAMIDE [Suspect]
     Indication: RHABDOMYOSARCOMA
     Dates: start: 20020129
  2. ONCOVIN [Suspect]
     Indication: RHABDOMYOSARCOMA
     Dates: start: 20020101
  3. ADRIAMYCIN PFS [Suspect]
     Indication: RHABDOMYOSARCOMA
     Dates: start: 20020101
  4. DACARBAZINE [Suspect]
     Indication: RHABDOMYOSARCOMA
     Dates: start: 20020101
  5. IMATINIB MESILATE [Concomitant]
     Dates: start: 20030212, end: 20030302

REACTIONS (4)
  - DEATH [None]
  - DIARRHOEA [None]
  - GASTRIC ULCER HAEMORRHAGE [None]
  - MALAISE [None]
